FAERS Safety Report 9094992 (Version 2)
Quarter: 2013Q1

REPORT INFORMATION
  Report Type: Spontaneous
  Country: US (occurrence: US)
  Receive Date: 20130220
  Receipt Date: 20130307
  Transmission Date: 20140127
  Serious: No
  Sender: FDA-Public Use
  Company Number: US-BIOGENIDEC-2013BI014465

PATIENT
  Sex: Female

DRUGS (2)
  1. AVONEX [Suspect]
     Indication: MULTIPLE SCLEROSIS
     Route: 030
     Dates: start: 20080101
  2. AVONEX [Suspect]
     Indication: MULTIPLE SCLEROSIS
     Route: 030
     Dates: start: 20101103, end: 20121113

REACTIONS (7)
  - Sunburn [Unknown]
  - Hypoaesthesia [Unknown]
  - Local swelling [Unknown]
  - Dyskinesia [Unknown]
  - Dysphemia [Recovered/Resolved]
  - Tremor [Recovered/Resolved]
  - Headache [Unknown]
